FAERS Safety Report 5472411-7 (Version None)
Quarter: 2007Q3

REPORT INFORMATION
  Report Type: 
  Country: None (occurrence: None)
  Receive Date: 20070927
  Receipt Date: 20070914
  Transmission Date: 20080115
  Serious: Yes (Other)
  Sender: FDA-Public Use
  Company Number: 4732 / 2007S1004493

PATIENT
  Age: 39 Year
  Sex: Female

DRUGS (4)
  1. AMNESTEEM [Suspect]
     Indication: ACNE
     Dosage: 60 MG, QD, PO
     Route: 048
     Dates: start: 20061129, end: 20070330
  2. ZOFRAN [Concomitant]
  3. PROZAC [Concomitant]
  4. LAMICTAL [Concomitant]

REACTIONS (1)
  - DRUG EXPOSURE BEFORE PREGNANCY [None]
